FAERS Safety Report 12928353 (Version 1)
Quarter: 2016Q4

REPORT INFORMATION
  Report Type: Spontaneous
  Country: JP (occurrence: JP)
  Receive Date: 20161110
  Receipt Date: 20161110
  Transmission Date: 20170207
  Serious: Yes (Other)
  Sender: FDA-Public Use
  Company Number: JP-CIPLA LTD.-2016JP20783

PATIENT

DRUGS (2)
  1. EFAVIRENZ [Suspect]
     Active Substance: EFAVIRENZ
     Indication: HIV INFECTION
     Dosage: 600 MG, QD
     Route: 065
  2. EFAVIRENZ [Suspect]
     Active Substance: EFAVIRENZ
     Dosage: 200 MG, QD
     Route: 065

REACTIONS (2)
  - Dizziness [Recovering/Resolving]
  - Drug level increased [Recovered/Resolved]
